FAERS Safety Report 9844608 (Version 1)
Quarter: 2014Q1

REPORT INFORMATION
  Report Type: Spontaneous
  Country: US (occurrence: None)
  Receive Date: 20140123
  Receipt Date: 20140123
  Transmission Date: 20141002
  Serious: Yes (Other)
  Sender: FDA-Public Use
  Company Number: 2130183

PATIENT
  Age: 33 Year
  Sex: Male

DRUGS (6)
  1. DIAZEPAM [Suspect]
  2. OXYMORPHONE [Suspect]
  3. (OXYCODONE) [Suspect]
  4. QUETIAPINE [Suspect]
  5. MIRTAZAPINE [Suspect]
  6. (ALPRAZOLAM) [Suspect]

REACTIONS (4)
  - Respiratory arrest [None]
  - Drug abuse [None]
  - Cardiac arrest [None]
  - Poisoning [None]
